FAERS Safety Report 17400636 (Version 2)
Quarter: 2020Q2

REPORT INFORMATION
  Report Type: Spontaneous
  Country: US (occurrence: US)
  Receive Date: 20200211
  Receipt Date: 20200519
  Transmission Date: 20200713
  Serious: No
  Sender: FDA-Public Use
  Company Number: US-JNJFOC-20200144464

PATIENT
  Sex: Male
  Weight: 28.6 kg

DRUGS (1)
  1. ZYRTEC [Suspect]
     Active Substance: CETIRIZINE HYDROCHLORIDE
     Indication: MAST CELL ACTIVATION SYNDROME
     Dosage: 10 ML IN AM?5 -15 ML IN PM
     Route: 048
     Dates: start: 2016

REACTIONS (2)
  - Overdose [Unknown]
  - Product use in unapproved indication [Unknown]
